APPROVED DRUG PRODUCT: NORETHIN 1/35E-21
Active Ingredient: ETHINYL ESTRADIOL; NORETHINDRONE
Strength: 0.035MG;1MG
Dosage Form/Route: TABLET;ORAL-21
Application: A071480 | Product #001
Applicant: WATSON PHARMACEUTICALS INC AN INDIRECT WHOLLY OWNED SUB OF TEVA PHARMACEUTICALS USA INC
Approved: Apr 12, 1988 | RLD: No | RS: No | Type: DISCN